FAERS Safety Report 6710366-5 (Version None)
Quarter: 2010Q2

REPORT INFORMATION
  Report Type: 
  Country: None (occurrence: None)
  Receive Date: 20100504
  Receipt Date: 20100427
  Transmission Date: 20101027
  Serious: Yes (Life-Threatening, Hospitalization)
  Sender: FDA-Public Use
  Company Number: US-ORACLE-2010S1000144

PATIENT
  Age: 71 Year
  Sex: Male
  Weight: 68.7 kg

DRUGS (24)
  1. CUBICIN [Suspect]
     Indication: OSTEOMYELITIS
     Route: 042
     Dates: start: 20100226, end: 20100319
  2. CUBICIN [Suspect]
     Route: 042
     Dates: start: 20100226, end: 20100319
  3. ALBUTEROL [Concomitant]
     Route: 055
  4. COLACE [Concomitant]
  5. COLCHICINE [Concomitant]
  6. AMIODARONE HCL [Concomitant]
  7. COREG [Concomitant]
  8. COREG [Concomitant]
  9. COUMADIN [Concomitant]
  10. COUMADIN [Concomitant]
  11. FISH OIL [Concomitant]
  12. TAMSULOSIN HCL [Concomitant]
  13. K-DUR [Concomitant]
  14. LOVENOX [Concomitant]
  15. ACETYLCYSTEINE [Concomitant]
  16. NAMENDA [Concomitant]
  17. PEPCID [Concomitant]
  18. QUETIAPINE [Concomitant]
  19. SINEMET [Concomitant]
  20. TIOTROPIUM BROMIDE [Concomitant]
  21. THERAGRAN /00554301/ [Concomitant]
  22. ZESTRIL [Concomitant]
  23. ZOCOR [Concomitant]
  24. ALLOPURINOL [Concomitant]

REACTIONS (2)
  - TORSADE DE POINTES [None]
  - VENTRICULAR FIBRILLATION [None]
